FAERS Safety Report 9855843 (Version 1)
Quarter: 2014Q1

REPORT INFORMATION
  Report Type: Spontaneous
  Country: US (occurrence: US)
  Receive Date: 20140130
  Receipt Date: 20140130
  Transmission Date: 20141002
  Serious: No
  Sender: FDA-Public Use
  Company Number: US-009507513-1401USA013178

PATIENT
  Sex: 0

DRUGS (1)
  1. AZASITE [Suspect]
     Dosage: 1 DROP IN BOTH EYES TWICE DAILY FOR 5 DAYS THEN1 DROP IN BOTH EYES ONCE DAILY FOR 10 DAYS
     Route: 047

REACTIONS (4)
  - Drug dose omission [Unknown]
  - Drug administration error [Unknown]
  - Product quality issue [Unknown]
  - No adverse event [Unknown]
